FAERS Safety Report 7705269-3 (Version None)
Quarter: 2011Q3

REPORT INFORMATION
  Report Type: 
  Country: None (occurrence: None)
  Receive Date: 20110824
  Receipt Date: 20110819
  Transmission Date: 20111222
  Serious: Yes (Other)
  Sender: FDA-Public Use
  Company Number: US-AMGEN-USASP2011042477

PATIENT
  Age: 16 Year
  Sex: Male

DRUGS (7)
  1. EPOGEN [Suspect]
     Indication: RENAL FAILURE CHRONIC
     Dosage: 2000 IU, 2 TIMES/WK
     Route: 065
     Dates: start: 20110701
  2. PREDNISONE TAB [Concomitant]
  3. AMLODIPINE [Concomitant]
  4. CALCIUM CARBONATE [Concomitant]
  5. FERROUS SULFATE TAB [Concomitant]
     Dosage: 1 MG, QD
  6. SODIUM BICARBONATE [Concomitant]
  7. CALCITRIOL [Concomitant]

REACTIONS (2)
  - DISEASE PROGRESSION [None]
  - INCORRECT STORAGE OF DRUG [None]
